FAERS Safety Report 5955656-9 (Version None)
Quarter: 2008Q4

REPORT INFORMATION
  Report Type: 
  Country: None (occurrence: None)
  Receive Date: 20081117
  Receipt Date: 20081106
  Transmission Date: 20090506
  Serious: Yes (Life-Threatening, Hospitalization)
  Sender: FDA-Public Use
  Company Number: AU-PFIZER INC-2008094796

PATIENT
  Sex: Female

DRUGS (10)
  1. CHAMPIX [Suspect]
     Dates: start: 20080501
  2. ZIPRASIDONE (CAPS) [Suspect]
     Dates: start: 20080715
  3. DIAZEPAM [Suspect]
  4. BENZHEXOL HYDROCHLORIDE [Suspect]
  5. FLUPENTIXOL DECANOATE [Suspect]
  6. CALTRATE [Concomitant]
  7. COLOXYL WITH SENNA [Concomitant]
  8. SERETIDE [Concomitant]
  9. SPIRIVA [Concomitant]
  10. VENTOLIN [Concomitant]

REACTIONS (2)
  - HYPONATRAEMIA [None]
  - RESPIRATORY FAILURE [None]
